FAERS Safety Report 10479941 (Version 1)
Quarter: 2014Q3

REPORT INFORMATION
  Report Type: Spontaneous
  Country: ZA (occurrence: ZA)
  Receive Date: 20140929
  Receipt Date: 20140929
  Transmission Date: 20150326
  Serious: Yes (Other)
  Sender: FDA-Public Use
  Company Number: ZA-ACCORD-026044

PATIENT
  Age: 60 Year
  Sex: Female
  Weight: 50 kg

DRUGS (2)
  1. CYTIGEM [Suspect]
     Active Substance: GEMCITABINE HYDROCHLORIDE
     Indication: LUNG CARCINOMA CELL TYPE UNSPECIFIED STAGE I
     Route: 042
     Dates: start: 20140901, end: 20140908
  2. CISPLATIN. [Suspect]
     Active Substance: CISPLATIN
     Indication: PRODUCT USED FOR UNKNOWN INDICATION

REACTIONS (2)
  - Rash pruritic [Recovering/Resolving]
  - Erythema [Recovering/Resolving]

NARRATIVE: CASE EVENT DATE: 20140903
